FAERS Safety Report 5082017-X (Version None)
Quarter: 2006Q3

REPORT INFORMATION
  Report Type: 
  Country: None (occurrence: None)
  Receive Date: 20060811
  Receipt Date: 20060731
  Transmission Date: 20061208
  Serious: Yes (Hospitalization)
  Sender: FDA-Public Use
  Company Number: 2006-01934

PATIENT
  Age: 59 Year
  Sex: Female
  Weight: 68 kg

DRUGS (5)
  1. VELCADE [Suspect]
     Indication: MULTIPLE MYELOMA
     Dosage: 2.50 MG/M2, INTRAVENOUS
     Route: 042
     Dates: start: 20060713
  2. CYCLOPHOSPHAMIDE [Suspect]
     Indication: MULTIPLE MYELOMA
     Dosage: 500.00 MG, ORAL
     Route: 048
     Dates: start: 20060713
  3. PREDNISONE [Suspect]
     Indication: MULTIPLE MYELOMA
     Dosage: 100.00 MG, ORAL
     Route: 048
     Dates: start: 20060713
  4. KYTRIL [Concomitant]
  5. STEMETIL ^AVENTIS PHARMA^ (PROCHLORPERAZINE) [Concomitant]

REACTIONS (8)
  - BLOOD BILIRUBIN INCREASED [None]
  - DEHYDRATION [None]
  - HEPATIC ENZYME INCREASED [None]
  - ILEUS [None]
  - LABORATORY TEST INTERFERENCE [None]
  - NAUSEA [None]
  - ULTRASOUND LIVER ABNORMAL [None]
  - VOMITING [None]
